FAERS Safety Report 8307593-2 (Version None)
Quarter: 2012Q2

REPORT INFORMATION
  Report Type: 
  Country: None (occurrence: None)
  Receive Date: 20120424
  Receipt Date: 20120411
  Transmission Date: 20120825
  Serious: Yes (Hospitalization)
  Sender: FDA-Public Use
  Company Number: US-COVIDIEN/TYCO HEALTHCARE/MALLINCKRODT-T201201457

PATIENT
  Age: 25 Year
  Sex: Female

DRUGS (10)
  1. SODIUM OXYBATE [Suspect]
     Dosage: 6 GRAMS DIVIDED DOSES, NIGHTLY
  2. SODIUM OXYBATE [Suspect]
     Dosage: 4.5 GRAMS DIVIDED DOSES, TITRATING Q 2 WKS
  3. SODIUM OXYBATE [Suspect]
     Dosage: 7.5 GRAMS
  4. SODIUM OXYBATE [Suspect]
     Dosage: 3 GRAMS DIVIDED DOSES, SLOW TITRATION
  5. DIAZEPAM [Suspect]
     Indication: MUSCLE SPASMS
     Dosage: 2 MG, TID
  6. SODIUM OXYBATE [Suspect]
     Indication: NARCOLEPSY
     Dosage: 9 GRAMS QD IN 2 DIVIDED DOSES
  7. OXYCODONE HCL [Suspect]
     Indication: PAIN
     Dosage: 10 MG, BID
  8. BUSPIRONE HCL [Concomitant]
     Indication: ANXIETY
     Dosage: UNK
  9. SODIUM OXYBATE [Suspect]
     Dosage: 5 GRAMS, 4 DAYS PER WEEK
  10. OXYCODONE HCL [Suspect]
     Dosage: 5-10 MG, EVERY 4 HOURS, PRN

REACTIONS (2)
  - PSYCHOTIC DISORDER [None]
  - MENTAL DISORDER [None]
